FAERS Safety Report 18659075 (Version 1)
Quarter: 2020Q4

REPORT INFORMATION
  Report Type: Spontaneous
  Country: MY (occurrence: MY)
  Receive Date: 20201224
  Receipt Date: 20201224
  Transmission Date: 20210114
  Serious: Yes (Other)
  Sender: FDA-Public Use
  Company Number: MY-SUN PHARMACEUTICAL INDUSTRIES LTD-2020R1-272091

PATIENT
  Age: 11 Year
  Sex: Male

DRUGS (1)
  1. CERUVIN [Suspect]
     Active Substance: CLOPIDOGREL BISULFATE
     Indication: ANTIPLATELET THERAPY
     Dosage: 75 MILLIGRAM, DAILY
     Route: 048

REACTIONS (2)
  - Rash maculo-papular [Recovering/Resolving]
  - Flushing [Recovering/Resolving]
